FAERS Safety Report 20665224 (Version 9)
Quarter: 2023Q1

REPORT INFORMATION
  Report Type: Other
  Country: US (occurrence: US)
  Receive Date: 20220401
  Receipt Date: 20230102
  Transmission Date: 20230418
  Serious: Yes (Other)
  Sender: FDA-Public Use
  Company Number: US-ROCHE-2582124

PATIENT
  Age: 64 Year
  Sex: Male
  Weight: 90.800 kg

DRUGS (8)
  1. ACTEMRA [Suspect]
     Active Substance: TOCILIZUMAB
     Indication: Giant cell arteritis
     Dosage: INJECT 162MG SUBCUTANEOUSLY EVERY WEEK ONGOING: YES
     Route: 058
  2. ACTEMRA [Suspect]
     Active Substance: TOCILIZUMAB
     Indication: Rheumatoid arthritis
  3. ACTEMRA [Suspect]
     Active Substance: TOCILIZUMAB
     Indication: Giant cell arteritis
     Dosage: (STRENGTH: 162 MG/0.9 ML PFS), INJECT 0.9 ML UNDER SKIN EVERY 7 DAYS
     Route: 058
     Dates: start: 20191219
  4. ACTEMRA [Suspect]
     Active Substance: TOCILIZUMAB
     Indication: Rheumatoid arthritis
     Dosage: DATE OF TREATMENT: 29/DEC/2022?INJECT 0.9 ML (162 MG TOCILIZUMAB) UNDER SKIN EVERY WEEKS
     Route: 058
     Dates: start: 2019
  5. XARELTO [Concomitant]
     Active Substance: RIVAROXABAN
     Indication: Anticoagulant therapy
     Route: 048
     Dates: start: 2019
  6. LISINOPRIL [Concomitant]
     Active Substance: LISINOPRIL
     Indication: Blood pressure measurement
     Route: 048
  7. METOPROLOL SUCCINATE [Concomitant]
     Active Substance: METOPROLOL SUCCINATE
     Indication: Blood pressure measurement
     Route: 048
  8. TYLENOL ARTHRITIS PAIN [Concomitant]
     Active Substance: ACETAMINOPHEN
     Indication: Headache
     Dosage: 650 UNIT NOT REPORTED?TAKES THREE AT A TIME
     Route: 048

REACTIONS (19)
  - Blindness [Unknown]
  - Visual impairment [Not Recovered/Not Resolved]
  - Eye discharge [Unknown]
  - Eyelid margin crusting [Unknown]
  - Eye irritation [Unknown]
  - Lacrimation increased [Unknown]
  - Weight increased [Unknown]
  - Headache [Unknown]
  - COVID-19 [Unknown]
  - Visual impairment [Unknown]
  - Wrong technique in product usage process [Unknown]
  - Eye pain [Unknown]
  - Asthenia [Unknown]
  - Illness [Unknown]
  - Optic neuritis [Unknown]
  - Vision blurred [Unknown]
  - Nerve compression [Not Recovered/Not Resolved]
  - Vision blurred [Not Recovered/Not Resolved]
  - Headache [Not Recovered/Not Resolved]

NARRATIVE: CASE EVENT DATE: 20221201
